FAERS Safety Report 13032922 (Version 1)
Quarter: 2016Q4

REPORT INFORMATION
  Report Type: Spontaneous
  Country: None (occurrence: US)
  Receive Date: 20161215
  Receipt Date: 20161215
  Transmission Date: 20170207
  Serious: No
  Sender: FDA-Public Use
  Company Number: US-BION-20160145

PATIENT
  Age: 39 Year
  Sex: Female
  Weight: 68.04 kg

DRUGS (1)
  1. ERGOCALCIFEROL CAPSULES 1.25 MG [Suspect]
     Active Substance: ERGOCALCIFEROL
     Indication: RICKETS

REACTIONS (3)
  - Rhinalgia [Recovered/Resolved]
  - Oral pain [Recovered/Resolved]
  - Pain of skin [Recovered/Resolved]
